FAERS Safety Report 16790348 (Version 1)
Quarter: 2019Q3

REPORT INFORMATION
  Report Type: Spontaneous
  Country: US (occurrence: US)
  Receive Date: 20190910
  Receipt Date: 20190910
  Transmission Date: 20191005
  Serious: Yes (Other)
  Sender: FDA-Public Use
  Company Number: PHEH2019US036926

PATIENT
  Sex: Male

DRUGS (1)
  1. MEKINIST [Suspect]
     Active Substance: TRAMETINIB DIMETHYL SULFOXIDE
     Indication: BRAIN NEOPLASM
     Dosage: 1 MG, QD
     Route: 048
     Dates: start: 20190124

REACTIONS (3)
  - Gene mutation [Unknown]
  - Product use in unapproved indication [Unknown]
  - Rash vesicular [Unknown]
